FAERS Safety Report 9003392 (Version 1)
Quarter: 2013Q1

REPORT INFORMATION
  Report Type: Spontaneous
  Country: US (occurrence: US)
  Receive Date: 20130108
  Receipt Date: 20130108
  Transmission Date: 20140127
  Serious: Yes (Death, Hospitalization)
  Sender: FDA-Public Use
  Company Number: US-GLAXOSMITHKLINE-A0818038A

PATIENT
  Age: 78 Year
  Sex: Female
  Weight: 70.5 kg

DRUGS (4)
  1. AVANDIA [Suspect]
     Indication: DIABETES MELLITUS
     Dosage: 4MG TWICE PER DAY
     Route: 048
     Dates: start: 20020927, end: 20080318
  2. HCTZ [Concomitant]
  3. LISINOPRIL [Concomitant]
  4. DARVOCET [Concomitant]

REACTIONS (4)
  - Death [Fatal]
  - Cerebrovascular accident [Unknown]
  - Osteogenesis imperfecta [Unknown]
  - Ankle fracture [Unknown]
